FAERS Safety Report 5408136-3 (Version None)
Quarter: 2007Q3

REPORT INFORMATION
  Report Type: 
  Country: None (occurrence: None)
  Receive Date: 20070808
  Receipt Date: 20070730
  Transmission Date: 20080115
  Serious: Yes (Hospitalization)
  Sender: FDA-Public Use
  Company Number: DE-JNJFOC-20070605446

PATIENT
  Age: 17 Year
  Sex: Female
  Weight: 50 kg

DRUGS (4)
  1. REMICADE [Suspect]
     Indication: CROHN'S DISEASE
     Route: 042
  2. AZATHIOPRINE [Concomitant]
  3. PURINETHOL [Concomitant]
     Indication: CROHN'S DISEASE
  4. PENTASA [Concomitant]
     Indication: CROHN'S DISEASE

REACTIONS (1)
  - GENITAL HERPES [None]
